FAERS Safety Report 23667704 (Version 1)
Quarter: 2024Q1

REPORT INFORMATION
  Report Type: Spontaneous
  Country: US (occurrence: None)
  Receive Date: 20240325
  Receipt Date: 20240325
  Transmission Date: 20240410
  Serious: No
  Sender: FDA-Public Use
  Company Number: 2024A057612

PATIENT
  Sex: Female

DRUGS (1)
  1. BUDESONIDE\FORMOTEROL [Suspect]
     Active Substance: BUDESONIDE\FORMOTEROL
     Dosage: UNKNOWN, AS REQUIRED AS REQUIRED
     Route: 055

REACTIONS (5)
  - Hypersensitivity [Unknown]
  - Device use issue [Unknown]
  - Product communication issue [Unknown]
  - Device malfunction [Unknown]
  - Wrong technique in device usage process [Unknown]
